FAERS Safety Report 5856519-X (Version None)
Quarter: 2008Q3

REPORT INFORMATION
  Report Type: 
  Country: None (occurrence: None)
  Receive Date: 20080825
  Receipt Date: 20080718
  Transmission Date: 20090109
  Serious: No
  Sender: FDA-Public Use
  Company Number: A0738456A

PATIENT
  Age: 35 Year
  Sex: Male

DRUGS (2)
  1. VERAMYST [Suspect]
     Dosage: 1PUFF PER DAY
     Route: 045
     Dates: start: 20080523
  2. ANTIBIOTIC [Concomitant]

REACTIONS (1)
  - MIGRAINE [None]
